FAERS Safety Report 9969691 (Version 1)
Quarter: 2014Q1

REPORT INFORMATION
  Report Type: Spontaneous
  Country: US (occurrence: None)
  Receive Date: 20140131
  Receipt Date: 20140131
  Transmission Date: 20141002
  Serious: Yes (Other)
  Sender: FDA-Public Use
  Company Number: 090663

PATIENT
  Sex: 0

DRUGS (4)
  1. KEPPRA [Suspect]
  2. LEVETIRACETAM [Suspect]
  3. TEGRETOL [Concomitant]
  4. ZONEGRAN [Concomitant]

REACTIONS (1)
  - Convulsion [None]
